FAERS Safety Report 25174356 (Version 1)
Quarter: 2025Q2

REPORT INFORMATION
  Report Type: Report from Study
  Country: US (occurrence: US)
  Receive Date: 20250408
  Receipt Date: 20250408
  Transmission Date: 20250716
  Serious: Yes (Death, Other)
  Sender: AMGEN
  Company Number: US-AMGEN-USASL2025066558

PATIENT
  Age: 62 Year
  Sex: Female

DRUGS (1)
  1. ENBREL [Suspect]
     Active Substance: ETANERCEPT
     Indication: Product used for unknown indication
     Route: 065
     Dates: end: 2024

REACTIONS (6)
  - Death [Fatal]
  - Immunodeficiency [Unknown]
  - Pain [Unknown]
  - Bronchitis [Unknown]
  - Sinusitis [Unknown]
  - Endoscopy [Unknown]

NARRATIVE: CASE EVENT DATE: 20250101
